FAERS Safety Report 6385145-1 (Version None)
Quarter: 2009Q4

REPORT INFORMATION
  Report Type: 
  Country: None (occurrence: None)
  Receive Date: 20091002
  Receipt Date: 20090914
  Transmission Date: 20100525
  Serious: Yes (Other)
  Sender: FDA-Public Use
  Company Number: US-BAXTER-2009BH014014

PATIENT
  Sex: Male
  Weight: 2 kg

DRUGS (4)
  1. GAMMAGARD LIQUID [Suspect]
     Indication: DRUG EXPOSURE DURING PREGNANCY
     Route: 064
     Dates: start: 20071001, end: 20070101
  2. GAMMAGARD LIQUID [Suspect]
     Route: 064
     Dates: start: 20070101, end: 20080601
  3. LOVENOX [Concomitant]
  4. ASPIRIN [Concomitant]

REACTIONS (3)
  - CAESAREAN SECTION [None]
  - DRUG EXPOSURE DURING PREGNANCY [None]
  - FOETAL HEART RATE DECREASED [None]
